FAERS Safety Report 4614018-7 (Version None)
Quarter: 2005Q1

REPORT INFORMATION
  Report Type: 
  Country: None (occurrence: None)
  Receive Date: 20050316
  Receipt Date: 20050302
  Transmission Date: 20050727
  Serious: Yes (Hospitalization)
  Sender: FDA-Public Use
  Company Number: 2005JP000465

PATIENT
  Age: 56 Year
  Sex: Male

DRUGS (3)
  1. PROGRAF [Suspect]
     Indication: RENAL TRANSPLANT
     Dosage: ORAL
     Route: 048
  2. CELLCEPT [Suspect]
     Dosage: ORAL
     Route: 048
     Dates: start: 20020201, end: 20030527
  3. STEROID [Concomitant]

REACTIONS (7)
  - CORNEAL DEPOSITS [None]
  - CYTOMEGALOVIRUS CHORIORETINITIS [None]
  - PNEUMONITIS CRYPTOCOCCAL [None]
  - RETINAL DEGENERATION [None]
  - RETINAL DETACHMENT [None]
  - RETINAL EXUDATES [None]
  - RETINAL INFARCTION [None]
